FAERS Safety Report 23394509 (Version 4)
Quarter: 2024Q1

REPORT INFORMATION
  Report Type: Report from Study
  Country: CH (occurrence: CH)
  Receive Date: 20240111
  Receipt Date: 20240215
  Transmission Date: 20240409
  Serious: Yes (Death, Hospitalization, Other)
  Sender: FDA-Public Use
  Company Number: CH-ABBVIE-5582573

PATIENT
  Sex: Female
  Weight: 35 kg

DRUGS (22)
  1. CARBIDOPA\LEVODOPA [Suspect]
     Active Substance: CARBIDOPA\LEVODOPA
     Indication: Parkinson^s disease
     Dosage: MD: 5.0 ML, CRD: 1.3 ML/H, ED: 2.00 ML?FREQUENCY TEXT: 16H THERAPY
     Route: 050
     Dates: start: 20230317, end: 20240109
  2. CARBIDOPA\LEVODOPA [Suspect]
     Active Substance: CARBIDOPA\LEVODOPA
  3. MOVICOL [Concomitant]
     Active Substance: POLYETHYLENE GLYCOL 3350\POTASSIUM CHLORIDE\SODIUM BICARBONATE\SODIUM CHLORIDE
     Indication: Constipation
  4. DOMPERIDONE [Concomitant]
     Active Substance: DOMPERIDONE
     Indication: Nausea
  5. Temesta [Concomitant]
     Indication: Restlessness
  6. Rudolac [Concomitant]
     Indication: Product used for unknown indication
  7. LAITEA [Concomitant]
     Indication: Dyspnoea
  8. ACTIVATED CHARCOAL\DIMETHICONE [Concomitant]
     Active Substance: ACTIVATED CHARCOAL\DIMETHICONE
     Indication: Flatulence
  9. SODIUM PICOSULFATE [Concomitant]
     Active Substance: SODIUM PICOSULFATE
     Indication: Constipation
  10. PROLIA [Concomitant]
     Active Substance: DENOSUMAB
     Indication: Product used for unknown indication
  11. PREGABALIN [Concomitant]
     Active Substance: PREGABALIN
     Indication: Product used for unknown indication
  12. Buprenorphin mepha [Concomitant]
     Indication: Product used for unknown indication
     Dosage: 35MCG/H
  13. DAFALGAN [Concomitant]
     Active Substance: ACETAMINOPHEN
     Indication: Pain
  14. METAMIZOL [Concomitant]
     Active Substance: METAMIZOLE SODIUM
     Indication: Pain
  15. BENSERAZIDE HYDROCHLORIDE\LEVODOPA [Concomitant]
     Active Substance: BENSERAZIDE HYDROCHLORIDE\LEVODOPA
     Indication: Product used for unknown indication
     Dosage: 200 PLUS 50 MG DUAL RELEASE TABLET
  16. GLYCOPYRRONIUM\INDACATEROL [Concomitant]
     Active Substance: GLYCOPYRRONIUM\INDACATEROL
     Indication: Dyspnoea
     Dosage: 110MCG/50MCG
  17. QUETIAPINE FUMARATE [Concomitant]
     Active Substance: QUETIAPINE FUMARATE
     Indication: Restlessness
  18. COLLYPAN [Concomitant]
     Indication: Eye irritation
  19. TRAZODONE HYDROCHLORIDE [Concomitant]
     Active Substance: TRAZODONE HYDROCHLORIDE
     Indication: Product used for unknown indication
  20. AMPHOTERICIN B [Concomitant]
     Active Substance: AMPHOTERICIN B
     Indication: Product used for unknown indication
  21. BENSERAZIDE HYDROCHLORIDE\LEVODOPA [Concomitant]
     Active Substance: BENSERAZIDE HYDROCHLORIDE\LEVODOPA
     Indication: Freezing phenomenon
  22. FREKA-CLYSS [Concomitant]
     Indication: Product used for unknown indication

REACTIONS (14)
  - Parkinson^s disease [Fatal]
  - Activated partial thromboplastin time prolonged [Unknown]
  - Anxiety [Unknown]
  - Troponin T increased [Unknown]
  - General physical health deterioration [Fatal]
  - Mental impairment [Unknown]
  - Red blood cell count decreased [Unknown]
  - Erythroblast count increased [Unknown]
  - Food refusal [Unknown]
  - Haemoglobin decreased [Unknown]
  - Dysphagia [Unknown]
  - White blood cell count decreased [Unknown]
  - Suicidal ideation [Unknown]
  - Glomerular filtration rate decreased [Unknown]
